FAERS Safety Report 12681462 (Version 4)
Quarter: 2016Q4

REPORT INFORMATION
  Report Type: Spontaneous
  Country: CA (occurrence: CA)
  Receive Date: 20160824
  Receipt Date: 20161026
  Transmission Date: 20170207
  Serious: Yes (Hospitalization)
  Sender: FDA-Public Use
  Company Number: CA-LPDUSPRD-20160736

PATIENT
  Age: 38 Year
  Sex: Female
  Weight: 50.8 kg

DRUGS (2)
  1. VENOFER [Suspect]
     Active Substance: IRON SUCROSE
     Dosage: 300 MG 2X/WK (X3 DOSES)
     Route: 042
     Dates: start: 20160324, end: 20160324
  2. PANTOPRAZOLE [Concomitant]
     Active Substance: PANTOPRAZOLE SODIUM
     Dosage: 40 MG BID, DAILY
     Route: 065

REACTIONS (5)
  - Paraesthesia [Recovering/Resolving]
  - Peripheral swelling [Recovering/Resolving]
  - Burning sensation [Recovering/Resolving]
  - Chest discomfort [Recovering/Resolving]
  - Urticaria [Recovered/Resolved]

NARRATIVE: CASE EVENT DATE: 20160324
